FAERS Safety Report 19890059 (Version 2)
Quarter: 2021Q4

REPORT INFORMATION
  Report Type: Spontaneous
  Country: JP (occurrence: JP)
  Receive Date: 20210928
  Receipt Date: 20211116
  Transmission Date: 20220303
  Serious: Yes (Death, Life-Threatening, Hospitalization, Other)
  Sender: FDA-Public Use
  Company Number: JP-ELI_LILLY_AND_COMPANY-JP202108003799

PATIENT
  Age: 76 Year
  Sex: Female
  Weight: 43 kg

DRUGS (17)
  1. VERZENIO [Suspect]
     Active Substance: ABEMACICLIB
     Indication: Breast cancer recurrent
     Dosage: 150 MG, BID
     Route: 048
     Dates: start: 20210517, end: 20210613
  2. VERZENIO [Suspect]
     Active Substance: ABEMACICLIB
     Dosage: 100 MG, BID
     Route: 048
     Dates: start: 20210628, end: 20210718
  3. ANASTROZOLE [Suspect]
     Active Substance: ANASTROZOLE
     Indication: Breast cancer recurrent
     Dosage: 1 MG, DAILY
     Route: 048
     Dates: start: 20210517, end: 20210627
  4. ANASTROZOLE [Suspect]
     Active Substance: ANASTROZOLE
     Dosage: 1 MG, DAILY
     Route: 065
     Dates: start: 20210712, end: 20210718
  5. COMIRNATY [Suspect]
     Active Substance: TOZINAMERAN
     Indication: COVID-19 immunisation
     Dosage: 0.3 MG, SINGLE
     Route: 030
     Dates: start: 20210713, end: 20210713
  6. LOPERAMIDE [Concomitant]
     Active Substance: LOPERAMIDE
     Dosage: 1 MG, PRN
     Route: 048
     Dates: start: 20210517
  7. CARBOHYDRATES\FATTY ACIDS\MINERALS\PROTEIN\VITAMINS [Concomitant]
     Active Substance: CARBOHYDRATES\FATTY ACIDS\MINERALS\PROTEIN\VITAMINS
     Dosage: 1 DOSAGE FORM, DAILY
     Route: 048
     Dates: start: 20210531, end: 20210627
  8. ETHYL LOFLAZEPATE [Concomitant]
     Active Substance: ETHYL LOFLAZEPATE
     Indication: Anxiety disorder
     Dosage: 1 MG, DAILY
     Route: 048
     Dates: start: 20210615, end: 20210719
  9. MOSAPRIDE CITRATE [Concomitant]
     Active Substance: MOSAPRIDE CITRATE
     Indication: Gastrooesophageal reflux disease
     Dosage: 5 MG, TID
     Route: 048
     Dates: start: 20210712, end: 20210719
  10. MOSAPRIDE CITRATE [Concomitant]
     Active Substance: MOSAPRIDE CITRATE
     Indication: Hypertension
  11. MOSAPRIDE CITRATE [Concomitant]
     Active Substance: MOSAPRIDE CITRATE
     Indication: Dyslipidaemia
  12. MEPENZOLATE [Concomitant]
     Dosage: 7.5 MG, TID
     Route: 048
  13. BIO-THREE [Concomitant]
     Active Substance: HERBALS
     Dosage: 1 DOSAGE FORM, TID
     Route: 048
     Dates: end: 20210719
  14. BENIDIPINE [Concomitant]
     Active Substance: BENIDIPINE
     Dosage: 2 MG, DAILY
     Route: 048
     Dates: start: 20210716, end: 20210719
  15. MAGNESIUM OXIDE [Concomitant]
     Active Substance: MAGNESIUM OXIDE
     Dosage: 330 MG, BID
     Route: 048
     Dates: end: 20210719
  16. ZOLPIDEM [Concomitant]
     Active Substance: ZOLPIDEM TARTRATE
     Dosage: 5 MG, DAILY
     Route: 048
     Dates: start: 20210716, end: 20210719
  17. FUROSEMIDE [Concomitant]
     Active Substance: FUROSEMIDE
     Dosage: 20 MG, DAILY
     Route: 048
     Dates: start: 20210614, end: 20210720

REACTIONS (7)
  - Interstitial lung disease [Fatal]
  - Septic shock [Fatal]
  - Stress cardiomyopathy [Unknown]
  - Disseminated intravascular coagulation [Unknown]
  - Pneumothorax [Unknown]
  - Pleural effusion [Unknown]
  - Hepatic function abnormal [Recovered/Resolved]

NARRATIVE: CASE EVENT DATE: 20210614
